FAERS Safety Report 4320232-0 (Version None)
Quarter: 2004Q1

REPORT INFORMATION
  Report Type: 
  Country: None (occurrence: None)
  Receive Date: 20040317
  Receipt Date: 20040315
  Transmission Date: 20041129
  Serious: Yes (Other)
  Sender: FDA-Public Use
  Company Number: IT-JNJFOC-20040302964

PATIENT
  Age: 17 Year

DRUGS (3)
  1. TOPAMAX [Suspect]
     Indication: EPILEPSY
     Dosage: 50 MG, IN 1 DAY
  2. VALPROIC ACID [Suspect]
     Indication: EPILEPSY
     Dosage: 9 MG/KG, IN 1 DAY
  3. PHENOBARBITAL TAB [Concomitant]

REACTIONS (2)
  - ENCEPHALOPATHY [None]
  - HYPERAMMONAEMIA [None]
